FAERS Safety Report 6876179-9 (Version None)
Quarter: 2010Q3

REPORT INFORMATION
  Report Type: 
  Country: None (occurrence: None)
  Receive Date: 20100727
  Receipt Date: 20100725
  Transmission Date: 20110219
  Serious: Yes (Hospitalization)
  Sender: FDA-Public Use
  Company Number: A0862456B

PATIENT
  Sex: Female
  Weight: 75.7 kg

DRUGS (13)
  1. ELTROMBOPAG [Suspect]
     Indication: THROMBOCYTOPENIA
     Dosage: 100MG PER DAY
     Route: 048
     Dates: start: 20100401
  2. PEG-INTRON [Suspect]
     Dosage: 120MCG WEEKLY
     Route: 058
     Dates: start: 20100401
  3. REBETOL [Suspect]
     Route: 048
     Dates: start: 20100401
  4. ELTROMBOPAG [Suspect]
     Dosage: 25MG PER DAY
     Route: 048
     Dates: start: 20100211, end: 20100401
  5. LORAZEPAM [Concomitant]
     Indication: ANXIETY
     Route: 048
  6. PAROXETINE HCL [Concomitant]
     Indication: DEPRESSION
     Route: 048
  7. PENTASA [Concomitant]
     Indication: CROHN'S DISEASE
     Route: 048
  8. ACTONEL [Concomitant]
     Indication: BONE DENSITOMETRY
     Route: 048
  9. SYNTHROID [Concomitant]
     Indication: HYPOTHYROIDISM
     Route: 048
  10. ACETAMINOPHEN [Concomitant]
     Route: 048
  11. IBUPROFEN TABLETS [Concomitant]
     Route: 048
  12. POTASSIUM CHLORIDE [Concomitant]
     Route: 048
  13. CALCIUM CARBONATE [Concomitant]
     Dosage: 1G THREE TIMES PER DAY
     Route: 048
     Dates: start: 20100527

REACTIONS (2)
  - ATRIAL FIBRILLATION [None]
  - PALPITATIONS [None]
